FAERS Safety Report 4573912-6 (Version None)
Quarter: 2005Q1

REPORT INFORMATION
  Report Type: 
  Country: None (occurrence: None)
  Receive Date: 20050203
  Receipt Date: 20050127
  Transmission Date: 20050727
  Serious: Yes (Hospitalization)
  Sender: FDA-Public Use
  Company Number: THQ2005A00155

PATIENT
  Age: 78 Year
  Sex: Male

DRUGS (2)
  1. PROCRIN DEPOT     (LEUPROLIDE ACETATE) [Suspect]
     Indication: PROSTATE CANCER
  2. BICALUTAMIDE [Concomitant]

REACTIONS (15)
  - ANAL SPHINCTER ATONY [None]
  - ASPARTATE AMINOTRANSFERASE INCREASED [None]
  - ASTHENIA [None]
  - BLADDER SPHINCTER ATONY [None]
  - BLOOD CREATININE INCREASED [None]
  - DIFFICULTY IN WALKING [None]
  - GAIT DISTURBANCE [None]
  - HYPOREFLEXIA [None]
  - MUSCULAR WEAKNESS [None]
  - MYALGIA [None]
  - MYOGLOBIN BLOOD INCREASED [None]
  - MYOPATHY [None]
  - PARAPARESIS [None]
  - PYREXIA [None]
  - WALKING AID USER [None]
